FAERS Safety Report 7939872-2 (Version None)
Quarter: 2011Q4

REPORT INFORMATION
  Report Type: 
  Country: None (occurrence: None)
  Receive Date: 20111125
  Receipt Date: 20110301
  Transmission Date: 20120403
  Serious: Yes (Disabling, Other)
  Sender: FDA-Public Use
  Company Number: FR-PFIZER INC-2010105041

PATIENT
  Sex: Male

DRUGS (1)
  1. VIAGRA [Suspect]
     Dosage: 50 MG, SINGLE
     Dates: start: 20100709, end: 20100709

REACTIONS (7)
  - RETINAL ARTERY OCCLUSION [None]
  - BLINDNESS UNILATERAL [None]
  - VISUAL ACUITY REDUCED [None]
  - ANXIETY [None]
  - RETINAL ARTERY THROMBOSIS [None]
  - INSOMNIA [None]
  - RETINAL ARTERY EMBOLISM [None]
